FAERS Safety Report 6611769-X (Version None)
Quarter: 2010Q1

REPORT INFORMATION
  Report Type: 
  Country: None (occurrence: None)
  Receive Date: 20100301
  Receipt Date: 20100301
  Transmission Date: 20100710
  Serious: Yes (Hospitalization)
  Sender: FDA-Public Use
  Company Number: None

PATIENT
  Age: 66 Year
  Sex: Male
  Weight: 99.7913 kg

DRUGS (2)
  1. ASPIRIN [Suspect]
     Indication: CARDIAC DISORDER
     Dosage: 1 TABLET ONE TIME ONLY PO
     Route: 048
     Dates: start: 20100227, end: 20100227
  2. GLUCOPHAGE [Concomitant]

REACTIONS (2)
  - DIZZINESS [None]
  - NAUSEA [None]
